FAERS Safety Report 13698212 (Version 2)
Quarter: 2017Q3

REPORT INFORMATION
  Report Type: Spontaneous
  Country: US (occurrence: US)
  Receive Date: 20170628
  Receipt Date: 20170719
  Transmission Date: 20171127
  Serious: No
  Sender: FDA-Public Use
  Company Number: US-PFIZER INC-2017276620

PATIENT
  Age: 15 Year
  Sex: Female

DRUGS (2)
  1. EUCRISA [Suspect]
     Active Substance: CRISABOROLE
     Indication: ECZEMA
     Dosage: UNK
     Dates: start: 20170620, end: 20170621
  2. EUCRISA [Suspect]
     Active Substance: CRISABOROLE
     Indication: DERMATITIS ATOPIC
     Dosage: UNK, APPLY THIN LAYER TO AFFECTED AREA ONE TIME A DAY
     Route: 061
     Dates: start: 20170619, end: 20170620

REACTIONS (1)
  - Application site pain [Recovered/Resolved]
